FAERS Safety Report 22131482 (Version 1)
Quarter: 2023Q1

REPORT INFORMATION
  Report Type: Spontaneous
  Country: US (occurrence: None)
  Receive Date: 20230323
  Receipt Date: 20230323
  Transmission Date: 20230418
  Serious: No
  Sender: FDA-Public Use
  Company Number: 2023A061469

PATIENT
  Sex: Male
  Weight: 102.1 kg

DRUGS (3)
  1. PULMICORT FLEXHALER [Suspect]
     Active Substance: BUDESONIDE
     Indication: Dyspnoea
     Dosage: 180,2 PUFFS,DAILY
     Route: 055
  2. PULMICORT FLEXHALER [Suspect]
     Active Substance: BUDESONIDE
     Indication: Asthma
     Dosage: 180,2 PUFFS,DAILY
     Route: 055
  3. PULMICORT FLEXHALER [Suspect]
     Active Substance: BUDESONIDE
     Indication: Hypersensitivity
     Dosage: 180,2 PUFFS,DAILY
     Route: 055

REACTIONS (7)
  - Body height decreased [Unknown]
  - Weight fluctuation [Unknown]
  - Product dose omission issue [Unknown]
  - Incorrect dose administered by device [Unknown]
  - Off label use [Unknown]
  - Device use issue [Unknown]
  - Device delivery system issue [Unknown]
